APPROVED DRUG PRODUCT: METHOCARBAMOL
Active Ingredient: METHOCARBAMOL
Strength: 500MG
Dosage Form/Route: TABLET;ORAL
Application: A087589 | Product #001
Applicant: SUPERPHARM CORP
Approved: Jan 22, 1982 | RLD: No | RS: No | Type: DISCN